FAERS Safety Report 4401154-3 (Version None)
Quarter: 2004Q3

REPORT INFORMATION
  Report Type: 
  Country: None (occurrence: None)
  Receive Date: 20040907
  Receipt Date: 20031121
  Transmission Date: 20050211
  Serious: No
  Sender: FDA-Public Use
  Company Number: US-BRISTOL-MYERS SQUIBB COMPANY-12441218

PATIENT
  Age: 83 Year
  Sex: Female
  Weight: 43 kg

DRUGS (1)
  1. COUMADIN [Suspect]

REACTIONS (1)
  - MUSCLE CRAMP [None]
